FAERS Safety Report 16169813 (Version 1)
Quarter: 2019Q2

REPORT INFORMATION
  Report Type: Spontaneous
  Country: US (occurrence: US)
  Receive Date: 20190407
  Receipt Date: 20190407
  Transmission Date: 20190711
  Serious: Yes (Hospitalization)
  Sender: FDA-Public Use
  Company Number: None

PATIENT
  Age: 41 Year
  Sex: Female
  Weight: 81 kg

DRUGS (4)
  1. LEXAPRO [Concomitant]
     Active Substance: ESCITALOPRAM OXALATE
  2. ATIVAN [Concomitant]
     Active Substance: LORAZEPAM
  3. PERPHENAZINE. [Suspect]
     Active Substance: PERPHENAZINE
     Indication: PSYCHOTIC DISORDER
     Route: 048
     Dates: start: 20180418, end: 20190314
  4. NIMIDIPINE [Concomitant]

REACTIONS (6)
  - Cerebrospinal fluid retention [None]
  - Brain oedema [None]
  - Neuroleptic malignant syndrome [None]
  - Catatonia [None]
  - Pyrexia [None]
  - Dyskinesia [None]

NARRATIVE: CASE EVENT DATE: 20190318
